FAERS Safety Report 4329924-0 (Version None)
Quarter: 2004Q1

REPORT INFORMATION
  Report Type: 
  Country: None (occurrence: None)
  Receive Date: 20040329
  Receipt Date: 20040315
  Transmission Date: 20041129
  Serious: Yes (Hospitalization)
  Sender: FDA-Public Use
  Company Number: FR-JNJFOC-20030703355

PATIENT
  Age: 36 Year
  Sex: Male

DRUGS (5)
  1. TOPIRAMATE [Suspect]
     Indication: EPILEPSY
     Dosage: 400 MG, 1 IN 1 DAY, ORAL
     Route: 048
  2. TRILEPTAL [Suspect]
     Indication: EPILEPSY
     Dosage: 1800 MG, 1 IN 1 DAY, ORAL
     Route: 048
  3. XANAX [Suspect]
     Dosage: ORAL
     Route: 048
  4. PROPRANOLOL [Suspect]
     Dosage: ORAL
     Route: 048
  5. STABLON (TIANEPTINE) [Suspect]
     Dosage: ORAL
     Route: 048

REACTIONS (3)
  - DRUG INTERACTION [None]
  - INFERTILITY MALE [None]
  - SPERMATOZOA ABNORMAL [None]
